FAERS Safety Report 4273920-9 (Version None)
Quarter: 2004Q1

REPORT INFORMATION
  Report Type: 
  Country: None (occurrence: None)
  Receive Date: 20040115
  Receipt Date: 20040108
  Transmission Date: 20041129
  Serious: Yes (Death)
  Sender: FDA-Public Use
  Company Number: MORS000064

PATIENT
  Age: 90 Year
  Sex: Female

DRUGS (2)
  1. MORPHINE SULFATE [Suspect]
     Indication: PAIN
     Dosage: INTRAVENOUS NOS
     Route: 042
     Dates: start: 20031201, end: 20031201
  2. MORPHINE [Concomitant]

REACTIONS (4)
  - CARDIOPULMONARY FAILURE [None]
  - DEPRESSED LEVEL OF CONSCIOUSNESS [None]
  - DRUG INEFFECTIVE [None]
  - STARING [None]
